FAERS Safety Report 10020753 (Version 2)
Quarter: 2014Q2

REPORT INFORMATION
  Report Type: Spontaneous
  Country: US (occurrence: US)
  Receive Date: 20140319
  Receipt Date: 20140502
  Transmission Date: 20141212
  Serious: No
  Sender: FDA-Public Use
  Company Number: US-009507513-1403USA007616

PATIENT
  Sex: Male

DRUGS (7)
  1. PEGINTRON [Suspect]
     Indication: HEPATITIS C
     Dosage: 0.5ML, Q 7 DAYS; REDIPEN
     Dates: start: 20140225
  2. REBETOL [Suspect]
     Indication: HEPATITIS C
     Dosage: 400MG A.M/600MG P.M, TWICE A DAY
     Route: 048
     Dates: start: 20140225
  3. PROPRANOLOL HYDROCHLORIDE [Concomitant]
     Dosage: 1 TABLET DAILY
  4. AMLODIPINE [Concomitant]
     Dosage: 5MG DIALY
  5. PLAVIX [Concomitant]
     Dosage: DOSE AS 175MG/75MG
  6. SOVALDI [Concomitant]
     Dosage: 400MG DAILY
  7. BRILIQUE [Concomitant]
     Dosage: 1 TABLET DAILY

REACTIONS (10)
  - Somnolence [Unknown]
  - Influenza [Unknown]
  - Pain [Unknown]
  - Rash macular [Unknown]
  - Fatigue [Unknown]
  - Influenza like illness [Unknown]
  - Asthenia [Unknown]
  - Headache [Unknown]
  - Pyrexia [Unknown]
  - Hypertension [Unknown]
